FAERS Safety Report 7694518-6 (Version None)
Quarter: 2011Q3

REPORT INFORMATION
  Report Type: 
  Country: None (occurrence: None)
  Receive Date: 20110819
  Receipt Date: 20110811
  Transmission Date: 20111222
  Serious: Yes (Other)
  Sender: FDA-Public Use
  Company Number: PHHY2010CA69390

PATIENT
  Sex: Female

DRUGS (2)
  1. SANDOSTATIN LAR [Suspect]
     Dosage: 20 MG EVERY 4 WEEKS
     Route: 030
  2. SANDOSTATIN LAR [Suspect]
     Indication: GASTROINTESTINAL ANGIODYSPLASIA
     Dosage: 20 MG, QMO
     Route: 030
     Dates: start: 20090101

REACTIONS (9)
  - INFLUENZA [None]
  - ANGINA PECTORIS [None]
  - INSOMNIA [None]
  - CHILLS [None]
  - FATIGUE [None]
  - MYALGIA [None]
  - COUGH [None]
  - SLEEP DISORDER [None]
  - BLOOD PRESSURE DECREASED [None]
